FAERS Safety Report 4299057-0 (Version None)
Quarter: 2004Q1

REPORT INFORMATION
  Report Type: 
  Country: None (occurrence: None)
  Receive Date: 20040217
  Receipt Date: 20040206
  Transmission Date: 20041129
  Serious: Yes (Death)
  Sender: FDA-Public Use
  Company Number: 200410402GDS

PATIENT
  Age: 78 Year
  Sex: Male

DRUGS (8)
  1. FLOCIPRIN (CIPROFLOXACIN HYDROCHLORIDE) [Suspect]
     Indication: CHRONIC OBSTRUCTIVE AIRWAYS DISEASE EXACERBATED
     Dosage: 500 MG, BID, ORAL
     Route: 048
     Dates: start: 20040109, end: 20040111
  2. AMIODARONE HCL [Concomitant]
  3. FUROSEMIDE [Concomitant]
  4. LOSARTAN [Concomitant]
  5. COUMADIN [Concomitant]
  6. POTASSIUM CANRENOATE [Concomitant]
  7. KCL TAB [Concomitant]
  8. BAMIFYLLINE [Concomitant]

REACTIONS (1)
  - TOXIC EPIDERMAL NECROLYSIS [None]
